FAERS Safety Report 23265066 (Version 2)
Quarter: 2023Q4

REPORT INFORMATION
  Report Type: Spontaneous
  Country: GB (occurrence: GB)
  Receive Date: 20231206
  Receipt Date: 20231218
  Transmission Date: 20240110
  Serious: Yes (Other)
  Sender: FDA-Public Use
  Company Number: GB-JNJFOC-20231208213

PATIENT
  Age: 53 Year
  Sex: Male
  Weight: 127 kg

DRUGS (1)
  1. SIMPONI [Suspect]
     Active Substance: GOLIMUMAB
     Indication: Ankylosing spondylitis
     Dosage: 100.00 MG/ML
     Route: 058

REACTIONS (2)
  - Neoplasm malignant [Recovered/Resolved]
  - Drug ineffective [Unknown]
